FAERS Safety Report 8400169-8 (Version None)
Quarter: 2012Q2

REPORT INFORMATION
  Report Type: 
  Country: None (occurrence: None)
  Receive Date: 20120531
  Receipt Date: 20120529
  Transmission Date: 20120825
  Serious: Yes (Hospitalization)
  Sender: FDA-Public Use
  Company Number: US-PFIZER INC-2012129442

PATIENT
  Sex: Female
  Weight: 104.31 kg

DRUGS (6)
  1. LOPRESSOR [Concomitant]
     Indication: HYPERTENSION
     Dosage: UNK
  2. ACETYLSALICYLIC ACID [Concomitant]
     Dosage: 325 MG, UNK
  3. SYNTHROID [Concomitant]
     Indication: HYPOTHYROIDISM
     Dosage: UNK
  4. LIPITOR [Suspect]
     Indication: BLOOD CHOLESTEROL INCREASED
     Dosage: 40 MG, 1X/DAY
     Route: 048
  5. ZOLOFT [Suspect]
     Indication: ANXIETY
     Dosage: 100 MG, 1X/DAY
     Route: 048
  6. AMLODIPINE/VALSARTAN [Concomitant]
     Indication: HYPERTENSION
     Dosage: UNK

REACTIONS (4)
  - ARTERIAL OCCLUSIVE DISEASE [None]
  - TRANSIENT ISCHAEMIC ATTACK [None]
  - CARDIAC DISORDER [None]
  - ANXIETY [None]
